FAERS Safety Report 12615276 (Version 2)
Quarter: 2016Q3

REPORT INFORMATION
  Report Type: Spontaneous
  Country: AT (occurrence: AT)
  Receive Date: 20160802
  Receipt Date: 20160805
  Transmission Date: 20161109
  Serious: Yes (Hospitalization, Other)
  Sender: FDA-Public Use
  Company Number: AT-SYNTHON BV-NL01PV16_41558

PATIENT
  Age: 66 Year
  Sex: Male
  Weight: 93 kg

DRUGS (10)
  1. ACEMIN                             /00894001/ [Suspect]
     Active Substance: LISINOPRIL
     Dosage: UNK
  2. SIMVASTATIN. [Suspect]
     Active Substance: SIMVASTATIN
     Dosage: 20 MG, UNK
  3. ZOLPIDEM [Suspect]
     Active Substance: ZOLPIDEM\ZOLPIDEM TARTRATE
     Dosage: UNK
  4. HEPARIN [Suspect]
     Active Substance: HEPARIN SODIUM
     Dosage: UNK
  5. ALNA [Suspect]
     Active Substance: TAMSULOSIN HYDROCHLORIDE
     Dosage: UNK
  6. THROMBO ASS [Suspect]
     Active Substance: ASPIRIN
     Dosage: UNK
  7. ELIQUIS [Suspect]
     Active Substance: APIXABAN
     Dosage: 5 MG, BID
     Dates: start: 201602, end: 201607
  8. XEFO [Concomitant]
     Active Substance: LORNOXICAM
     Indication: INTERVERTEBRAL DISC OPERATION
     Dosage: UNK
  9. NICOTINELL [Suspect]
     Active Substance: NICOTINE
     Dosage: UNK
  10. VOLTAREN                           /00372303/ [Concomitant]
     Indication: INTERVERTEBRAL DISC OPERATION
     Dosage: UNK

REACTIONS (6)
  - Haemorrhage [Unknown]
  - Cerebral ischaemia [Unknown]
  - Dizziness [Unknown]
  - Headache [Recovered/Resolved]
  - Cerebrovascular accident [Unknown]
  - Cerebrovascular accident [Unknown]

NARRATIVE: CASE EVENT DATE: 20160223
